FAERS Safety Report 25219307 (Version 1)
Quarter: 2025Q2

REPORT INFORMATION
  Report Type: Spontaneous
  Country: IT (occurrence: IT)
  Receive Date: 20250421
  Receipt Date: 20250421
  Transmission Date: 20250717
  Serious: Yes (Other)
  Sender: Steriscience PTE
  Company Number: IT-STERISCIENCE B.V.-2025-ST-000740

PATIENT
  Age: 81 Year
  Sex: Female

DRUGS (2)
  1. OXACILLIN [Suspect]
     Active Substance: OXACILLIN SODIUM
     Indication: Staphylococcal infection
     Route: 065
  2. OXACILLIN [Suspect]
     Active Substance: OXACILLIN SODIUM
     Indication: Pneumonia staphylococcal

REACTIONS (1)
  - Autoimmune haemolytic anaemia [None]
